FAERS Safety Report 8790364 (Version 1)
Quarter: 2012Q4

REPORT INFORMATION
  Report Type: 
  Country: CN (occurrence: CN)
  Receive Date: 20120917
  Receipt Date: 20120917
  Transmission Date: 20130627
  Serious: Yes (Death, Other)
  Sender: FDA-Public Use
  Company Number: CN-BAYER-2012-091834

PATIENT
  Age: 62 Year
  Sex: Male

DRUGS (1)
  1. NEXAVAR [Suspect]
     Indication: HEPATIC NEOPLASM MALIGNANT
     Dosage: 400 mg, BID
     Route: 048
     Dates: start: 20060824

REACTIONS (5)
  - Myocardial infarction [Fatal]
  - Angina pectoris [Not Recovered/Not Resolved]
  - Coma [Not Recovered/Not Resolved]
  - Blood pressure increased [Recovered/Resolved]
  - Palmar-plantar erythrodysaesthesia syndrome [Recovering/Resolving]
